FAERS Safety Report 15612379 (Version 1)
Quarter: 2018Q4

REPORT INFORMATION
  Report Type: Spontaneous
  Country: US (occurrence: US)
  Receive Date: 20181113
  Receipt Date: 20181113
  Transmission Date: 20190205
  Serious: Yes (Hospitalization)
  Sender: FDA-Public Use
  Company Number: US-MYLANLABS-2018M1083847

PATIENT
  Age: 61 Year
  Sex: Male

DRUGS (1)
  1. WARFARIN [Suspect]
     Active Substance: WARFARIN
     Indication: DEEP VEIN THROMBOSIS
     Dosage: 7.5 MG, UNK
     Route: 065

REACTIONS (4)
  - Mesenteric haematoma [Recovered/Resolved]
  - Small intestinal obstruction [Recovered/Resolved]
  - Intestinal ischaemia [Recovered/Resolved]
  - Intestinal haematoma [Recovered/Resolved]
